FAERS Safety Report 9733645 (Version 2)
Quarter: 2014Q1

REPORT INFORMATION
  Report Type: Spontaneous
  Country: US (occurrence: US)
  Receive Date: 20131205
  Receipt Date: 20140108
  Transmission Date: 20141002
  Serious: Yes (Hospitalization)
  Sender: FDA-Public Use
  Company Number: US-PURDUE-USA-2013-0109140

PATIENT
  Sex: Male

DRUGS (5)
  1. OXYCONTIN (NDA 22-272) [Suspect]
     Indication: NEUROPATHY PERIPHERAL
     Dosage: 20 MG, BID
     Route: 048
  2. OXYCONTIN (NDA 22-272) [Suspect]
     Dosage: 15 MG, BID
     Route: 048
  3. OXYCONTIN (NDA 22-272) [Suspect]
     Dosage: 10 MG, BID
     Route: 048
  4. COUMADIN /00014802/ [Suspect]
     Indication: PRODUCT USED FOR UNKNOWN INDICATION
  5. PERCOCET                           /00867901/ [Concomitant]
     Indication: BREAKTHROUGH PAIN
     Dosage: 1 TABLET, Q6H
     Route: 048

REACTIONS (9)
  - Investigation [Unknown]
  - Pain [Unknown]
  - Therapeutic response delayed [Not Recovered/Not Resolved]
  - Drug ineffective [Not Recovered/Not Resolved]
  - Drug tolerance [Unknown]
  - Constipation [Unknown]
  - Diarrhoea [Unknown]
  - Drug effect decreased [Not Recovered/Not Resolved]
  - Spinal nerve stimulator implantation [Unknown]
